FAERS Safety Report 7837146 (Version 2)
Quarter: 2015Q3

REPORT INFORMATION
  Report Type: Report from Study
  Country: DE (occurrence: DE)
  Receive Date: 20110302
  Receipt Date: 20150903
  Transmission Date: 20151125
  Serious: Yes (Death, Other)
  Sender: FDA-Public Use
  Company Number: DE-ROCHE-762066

PATIENT
  Age: 48 Year
  Sex: Female
  Weight: 59 kg

DRUGS (6)
  1. TRASTUZUMAB [Suspect]
     Active Substance: TRASTUZUMAB
     Route: 042
     Dates: start: 20101020, end: 20101103
  2. PACLITAXEL. [Suspect]
     Active Substance: PACLITAXEL
     Indication: BREAST CANCER
     Route: 065
     Dates: start: 20101013, end: 20101013
  3. PARACETAMOL [Concomitant]
     Active Substance: ACETAMINOPHEN
     Indication: PYREXIA
     Route: 065
     Dates: start: 20101015, end: 20101020
  4. TRASTUZUMAB [Suspect]
     Active Substance: TRASTUZUMAB
     Indication: BREAST CANCER
     Dosage: ADJUVANTE THERAPY
     Route: 042
  5. ZOLEDRONATE [Concomitant]
     Active Substance: ZOLEDRONIC ACID
     Indication: METASTASES TO BONE
     Route: 065
  6. TRASTUZUMAB [Suspect]
     Active Substance: TRASTUZUMAB
     Dosage: 235 MG
     Route: 042
     Dates: start: 20101012, end: 20101012

REACTIONS (10)
  - Pleural effusion [Fatal]
  - Oesophagitis [Unknown]
  - Faeces discoloured [Unknown]
  - Gastritis erosive [Unknown]
  - Dyspnoea [Fatal]
  - Metastases to bone marrow [Unknown]
  - Pneumonia [Fatal]
  - Anaemia of malignant disease [Unknown]
  - General physical health deterioration [Fatal]
  - Thrombocytopenia [Unknown]

NARRATIVE: CASE EVENT DATE: 20101105
